FAERS Safety Report 14568024 (Version 1)
Quarter: 2018Q1

REPORT INFORMATION
  Report Type: Spontaneous
  Country: DE (occurrence: DE)
  Receive Date: 20180223
  Receipt Date: 20180223
  Transmission Date: 20180509
  Serious: Yes (Life-Threatening, Hospitalization)
  Sender: FDA-Public Use
  Company Number: DE-AMGEN-DEUNI2018024197

PATIENT
  Age: 81 Year
  Sex: Male
  Weight: 72 kg

DRUGS (19)
  1. LOPEDIUM [Concomitant]
     Active Substance: LOPERAMIDE
     Indication: DIARRHOEA
     Dosage: 2 MG, AS NECESSARY
     Route: 048
  2. 5-FLUOROURACIL [Concomitant]
     Active Substance: FLUOROURACIL
     Indication: COLORECTAL CANCER
     Dosage: 700 MG, Q2WK
     Route: 040
     Dates: start: 20140408
  3. NOVALGIN (METAMIZOLE SODIUM) [Concomitant]
     Active Substance: METAMIZOLE SODIUM
     Indication: ABDOMINAL PAIN LOWER
     Dosage: 500 MG, AS NECESSARY
     Route: 048
  4. XELODA [Suspect]
     Active Substance: CAPECITABINE
     Dosage: 3500 MG, QD (DAILY FOR TWO WEEKS FOLLOWED BY A WEEK PAUSE)
     Route: 048
     Dates: start: 20150303, end: 20150316
  5. XELODA [Suspect]
     Active Substance: CAPECITABINE
     Dosage: 3500 MG, QD (DAILY FOR TWO WEEKS FOLLOWED BY A WEEK PAUSE)
     Route: 048
     Dates: start: 20141030, end: 20141112
  6. XELODA [Suspect]
     Active Substance: CAPECITABINE
     Dosage: 3500 MG, QD (DAILY FOR TWO WEEKS FOLLOWED BY A WEEK PAUSE)
     Route: 048
     Dates: start: 20150212, end: 20150225
  7. XELODA [Suspect]
     Active Substance: CAPECITABINE
     Dosage: 3500 MG, QD (DAILY FOR TWO WEEKS FOLLOWED BY A WEEK PAUSE)
     Route: 048
     Dates: start: 20150415, end: 20150505
  8. XELODA [Suspect]
     Active Substance: CAPECITABINE
     Dosage: 3500 MG, QD (DAILY FOR TWO WEEKS FOLLOWED BY A WEEK PAUSE)
     Route: 048
     Dates: start: 20150122
  9. AMLODIPIN [Concomitant]
     Active Substance: AMLODIPINE BESYLATE
     Indication: HYPERTENSION
     Dosage: 5 MG, QD
     Route: 048
     Dates: start: 20140521
  10. OXALIPLATIN. [Concomitant]
     Active Substance: OXALIPLATIN
     Indication: COLORECTAL CANCER
     Dosage: 155 MG, Q2WK
     Route: 042
     Dates: start: 20140408
  11. AVASTIN [Suspect]
     Active Substance: BEVACIZUMAB
     Indication: COLORECTAL CANCER METASTATIC
     Dosage: 360 MG, Q2WK
     Route: 042
     Dates: start: 20140423
  12. AVASTIN [Suspect]
     Active Substance: BEVACIZUMAB
     Dosage: 370 MG, Q3WK
     Route: 042
     Dates: start: 20150325, end: 20150414
  13. XELODA [Suspect]
     Active Substance: CAPECITABINE
     Dosage: 3500 MG, QD (DAILY FOR TWO WEEKS FOLLOWED BY A WEEK PAUSE)
     Route: 048
     Dates: start: 20150105, end: 20150119
  14. XELODA [Suspect]
     Active Substance: CAPECITABINE
     Dosage: 3500 MG, QD (DAILY FOR TWO WEEKS FOLLOWED BY A WEEK PAUSE)
     Route: 048
     Dates: start: 20150325, end: 20150414
  15. XELODA [Suspect]
     Active Substance: CAPECITABINE
     Dosage: 3500 MG, QD (DAILY FOR TWO WEEKS FOLLOWED BY A WEEK PAUSE)
     Route: 048
     Dates: start: 20141211, end: 20141224
  16. ARANESP [Suspect]
     Active Substance: DARBEPOETIN ALFA
     Indication: ANAEMIA OF MALIGNANT DISEASE
     Dosage: 500 MG, Q3WK
     Route: 058
     Dates: start: 20140408
  17. XELODA [Suspect]
     Active Substance: CAPECITABINE
     Indication: COLORECTAL CANCER
     Dosage: 3500 MG, QD (DAILY FOR TWO WEEKS FOLLOWED BY A WEEK PAUSE)
     Route: 048
     Dates: start: 20141009, end: 20141022
  18. XELODA [Suspect]
     Active Substance: CAPECITABINE
     Dosage: 3500 MG, QD (DAILY FOR TWO WEEKS FOLLOWED BY A WEEK PAUSE)
     Route: 048
     Dates: start: 20141120, end: 20141203
  19. FOLINIC ACID [Concomitant]
     Active Substance: LEUCOVORIN
     Indication: COLORECTAL CANCER
     Dosage: 700 MG, Q2WK
     Route: 042
     Dates: start: 20140408

REACTIONS (2)
  - Subileus [Recovered/Resolved with Sequelae]
  - Large intestine perforation [Unknown]

NARRATIVE: CASE EVENT DATE: 20150507
